FAERS Safety Report 18183650 (Version 1)
Quarter: 2020Q3

REPORT INFORMATION
  Report Type: Spontaneous
  Country: US (occurrence: US)
  Receive Date: 20200822
  Receipt Date: 20200822
  Transmission Date: 20201103
  Serious: No
  Sender: FDA-Public Use
  Company Number: US-ANIPHARMA-2019-US-016131

PATIENT
  Sex: 0

DRUGS (5)
  1. TRAZODONE [Concomitant]
     Active Substance: TRAZODONE HYDROCHLORIDE
     Dosage: 150 MG TABLETS AT BEDTIME
     Dates: start: 201803
  2. ANASTROZOLE. [Suspect]
     Active Substance: ANASTROZOLE
     Indication: BREAST CANCER
     Dosage: UNK
  3. REGLAN [Concomitant]
     Active Substance: METOCLOPRAMIDE HYDROCHLORIDE
     Dosage: 10 MG TABLETS BY MOUTH THREE TIMES DAILY
     Route: 048
     Dates: start: 201809
  4. PRAVASTATIN. [Concomitant]
     Active Substance: PRAVASTATIN
     Dosage: 20 MG TABLETS BY MOUTH AT BEDTIME
     Route: 048
     Dates: start: 20180531
  5. DEXILANT [Concomitant]
     Active Substance: DEXLANSOPRAZOLE
     Dosage: 60 MG BIPHASIC CAPSULES ONCE DAILY
     Route: 048
     Dates: start: 201805

REACTIONS (1)
  - Drug ineffective [Unknown]
